FAERS Safety Report 6015776-X (Version None)
Quarter: 2008Q4

REPORT INFORMATION
  Report Type: 
  Country: None (occurrence: None)
  Receive Date: 20081222
  Receipt Date: 20081117
  Transmission Date: 20090506
  Serious: Yes (Hospitalization)
  Sender: FDA-Public Use
  Company Number: NO-BAXTER-2008BH011789

PATIENT
  Age: 85 Year
  Sex: Female

DRUGS (9)
  1. METRONIDAZOLE [Suspect]
     Indication: DRUG USE FOR UNKNOWN INDICATION
     Dosage: DOSE UNIT:UNKNOWN
     Route: 065
  2. BURINEX [Suspect]
     Indication: DRUG USE FOR UNKNOWN INDICATION
     Route: 065
     Dates: end: 20081001
  3. SPIRIX [Suspect]
     Indication: DRUG USE FOR UNKNOWN INDICATION
     Dosage: 12,5 MG X 1 DOSE UNIT:UNKNOWN
     Route: 065
     Dates: end: 20081001
  4. RAMIPRIL [Concomitant]
  5. SCHERIPROCT [Concomitant]
  6. MIRCERA [Concomitant]
  7. METOPROLOL [Concomitant]
  8. CETIRIZINE HCL [Concomitant]
     Indication: PRURITUS ALLERGIC
  9. NIFEREX [Concomitant]

REACTIONS (3)
  - DEHYDRATION [None]
  - DEMENTIA [None]
  - DIARRHOEA [None]
